FAERS Safety Report 7208390-1 (Version None)
Quarter: 2011Q1

REPORT INFORMATION
  Report Type: 
  Country: None (occurrence: None)
  Receive Date: 20110104
  Receipt Date: 20101222
  Transmission Date: 20110831
  Serious: Yes (Hospitalization)
  Sender: FDA-Public Use
  Company Number: PHFR2010GB05561

PATIENT
  Sex: Female

DRUGS (10)
  1. CLOZARIL [Suspect]
     Dosage: 250 MG, BID
     Route: 048
  2. METFORMIN [Concomitant]
     Dosage: 1700 MG, UNK
  3. PAROXETINE HCL [Concomitant]
     Dosage: 30 MG, UNK
  4. ACETYLSALICYLIC ACID SRT [Concomitant]
     Dosage: 75 MG, UNK
  5. CLOZARIL [Suspect]
     Indication: SCHIZOPHRENIA
     Dosage: UNK
     Route: 048
     Dates: start: 20010426
  6. SIMVASTATIN [Concomitant]
     Dosage: 40 MG, UNK
  7. RANITIDINE [Concomitant]
     Dosage: 150 MG, UNK
  8. DIPYRIDAMOLE [Concomitant]
     Dosage: 400 MG, UNK
  9. HYOSCINE HBR HYT [Concomitant]
     Dosage: 30 UG, TID
     Route: 048
  10. TROSPIUM CHLORIDE [Concomitant]
     Dosage: 20 MG, BID

REACTIONS (1)
  - ANKLE FRACTURE [None]
